FAERS Safety Report 9184069 (Version 1)
Quarter: 2012Q4

REPORT INFORMATION
  Report Type: 
  Country: IT (occurrence: IT)
  Receive Date: 20121031
  Receipt Date: 20121031
  Transmission Date: 20130627
  Serious: Yes (Other)
  Sender: FDA-Public Use
  Company Number: PHHY2012IT098113

PATIENT
  Age: 76 None
  Sex: Female

DRUGS (9)
  1. ACLASTA [Suspect]
     Indication: HYPERCALCAEMIA OF MALIGNANCY
     Dosage: 4 mg, UNK
     Route: 042
     Dates: start: 20121002
  2. PANTOPRAZOLE [Concomitant]
     Dosage: 20 mg, UNK
  3. PARACETAMOL [Concomitant]
     Dosage: 1 g, UNK
  4. PARACODINE [Concomitant]
     Dosage: 10.25 mg/ml, UNK
     Route: 048
  5. XANAX [Concomitant]
     Dosage: UNK UKN, UNK
  6. LASIX [Concomitant]
     Dosage: 12.5 mg, UNK
  7. MEDROL [Concomitant]
     Dosage: 16 mg, UNK
  8. EUTHYROX [Concomitant]
     Indication: POST PROCEDURAL HYPOTHYROIDISM
     Dosage: 100 mcg, since 3 years
  9. CARDIOASPIRINA [Concomitant]
     Dosage: 100 mg, UNK

REACTIONS (2)
  - Cardiac fibrillation [Recovered/Resolved]
  - Incorrect dose administered [Unknown]
